FAERS Safety Report 23331505 (Version 3)
Quarter: 2023Q4

REPORT INFORMATION
  Report Type: Spontaneous
  Country: KR (occurrence: KR)
  Receive Date: 20231222
  Receipt Date: 20231228
  Transmission Date: 20240110
  Serious: No
  Sender: FDA-Public Use
  Company Number: KR-PFIZER INC-PV202300196419

PATIENT
  Age: 14 Year
  Sex: Male

DRUGS (1)
  1. GENOTROPIN [Suspect]
     Active Substance: SOMATROPIN
     Indication: Short stature
     Dosage: 8 IU, 6 TIMES A WEEK

REACTIONS (5)
  - Poor quality product administered [Unknown]
  - Liquid product physical issue [Unknown]
  - Device material issue [Unknown]
  - Device leakage [Unknown]
  - Drug dose omission by device [Unknown]
